FAERS Safety Report 12243839 (Version 1)
Quarter: 2016Q2

REPORT INFORMATION
  Report Type: Spontaneous
  Country: US (occurrence: US)
  Receive Date: 20160406
  Receipt Date: 20160406
  Transmission Date: 20160815
  Serious: No
  Sender: FDA-Public Use
  Company Number: US-GE HEALTHCARE MEDICAL DIAGNOSTICS-OSCN-PR-1602S-0010

PATIENT
  Age: 21 Year
  Sex: Female

DRUGS (2)
  1. OMNISCAN [Suspect]
     Active Substance: GADODIAMIDE
     Indication: PERIRECTAL ABSCESS
     Route: 042
     Dates: start: 20160208, end: 20160208
  2. OMNISCAN [Suspect]
     Active Substance: GADODIAMIDE
     Indication: DIAGNOSTIC PROCEDURE

REACTIONS (3)
  - Pallor [Recovered/Resolved]
  - Nausea [Recovered/Resolved]
  - Dysgeusia [Recovered/Resolved]

NARRATIVE: CASE EVENT DATE: 20160208
